FAERS Safety Report 24743638 (Version 1)
Quarter: 2024Q4

REPORT INFORMATION
  Report Type: Report from Study
  Country: US (occurrence: US)
  Receive Date: 20241217
  Receipt Date: 20241217
  Transmission Date: 20250114
  Serious: Yes (Other)
  Sender: BRISTOL-MYERS SQUIBB COMPANY
  Company Number: US-BRISTOL-MYERS SQUIBB COMPANY-2024-191917

PATIENT
  Age: 62 Year

DRUGS (2)
  1. COBENFY [Suspect]
     Active Substance: TROSPIUM CHLORIDE\XANOMELINE
     Indication: Product used for unknown indication
     Dosage: 50MG/20MG
  2. COBENFY [Suspect]
     Active Substance: TROSPIUM CHLORIDE\XANOMELINE
     Dosage: 100MG/20MG

REACTIONS (5)
  - Hyperhidrosis [Unknown]
  - Vomiting [Unknown]
  - Headache [Unknown]
  - Tinnitus [Unknown]
  - Hallucination, visual [Unknown]
